FAERS Safety Report 12548161 (Version 2)
Quarter: 2016Q3

REPORT INFORMATION
  Report Type: Spontaneous
  Country: US (occurrence: US)
  Receive Date: 20160712
  Receipt Date: 20160713
  Transmission Date: 20161109
  Serious: No
  Sender: FDA-Public Use
  Company Number: US-PFIZER INC-2016334464

PATIENT
  Age: 58 Year
  Sex: Female
  Weight: 65.77 kg

DRUGS (11)
  1. FISH OIL [Concomitant]
     Active Substance: FISH OIL
     Dosage: 1200 MG, 2X/DAY (1,200MG CAPSULE BY MOUTH TWICE A DAY)
     Route: 048
     Dates: start: 2010
  2. FISH OIL [Concomitant]
     Active Substance: FISH OIL
     Dosage: 1200 MG, 2X/DAY (1,200MG CAPSULE BY MOUTH TWICE A DAY)
     Route: 048
  3. CENTRUM SILVER WOMEN^S 50+ [Concomitant]
     Active Substance: MINERALS\VITAMINS
     Indication: VITAMIN SUPPLEMENTATION
     Dosage: ONE TABLET BY MOUTH AT NIGHT
     Route: 048
     Dates: start: 2011
  4. SUBSTITUTE PROGRAFT [Concomitant]
     Indication: TRANSPLANT REJECTION
     Dosage: 2 MG, 2X/DAY (2MG CAPSULE BY MOUTH TWICE A DAY)
     Route: 048
  5. FISH OIL [Concomitant]
     Active Substance: FISH OIL
     Indication: BLOOD CHOLESTEROL ABNORMAL
     Dosage: UNK, ONE CAPSULE A DAY
     Dates: start: 2010
  6. SENNA S [Concomitant]
     Active Substance: DOCUSATE SODIUM\SENNA LEAF
     Dosage: 1 DF, 1X/DAY(ONE TABLET BY MOUTH A DAY)
     Route: 048
  7. LYRICA [Suspect]
     Active Substance: PREGABALIN
     Indication: DIABETIC NEUROPATHY
     Dosage: 50 MG, 3X/DAY
     Route: 048
  8. LYRICA [Suspect]
     Active Substance: PREGABALIN
     Dosage: 100 MG, 3X/DAY
     Route: 048
  9. CALCIUM AND VITAMIN D [Concomitant]
     Active Substance: CALCIUM\VITAMIN D
     Indication: BONE DISORDER
     Dosage: 600 MG, 1X/DAY (600MG TABLET BY MOUTH ONCE IN THE MORNING)
     Route: 048
  10. LYRICA [Suspect]
     Active Substance: PREGABALIN
     Indication: PAIN
     Dosage: 75 MG, 3X/DAY
     Route: 048
  11. SENNA S [Concomitant]
     Active Substance: DOCUSATE SODIUM\SENNA LEAF
     Indication: FAECES HARD
     Dosage: 2 DF, 2X/DAY (TWO TABLETS TWICE A DAY)
     Route: 048
     Dates: start: 2010

REACTIONS (11)
  - Drug ineffective [Unknown]
  - Back pain [Not Recovered/Not Resolved]
  - Intervertebral disc degeneration [Unknown]
  - Arthropathy [Unknown]
  - Musculoskeletal discomfort [Unknown]
  - Pain [Unknown]
  - Sciatica [Not Recovered/Not Resolved]
  - Hypoaesthesia [Not Recovered/Not Resolved]
  - Memory impairment [Unknown]
  - Gait disturbance [Unknown]
  - Mobility decreased [Unknown]

NARRATIVE: CASE EVENT DATE: 201606
